FAERS Safety Report 13881221 (Version 1)
Quarter: 2017Q3

REPORT INFORMATION
  Report Type: Spontaneous
  Country: GB (occurrence: GB)
  Receive Date: 20170818
  Receipt Date: 20170818
  Transmission Date: 20171127
  Serious: Yes (Disabling)
  Sender: FDA-Public Use
  Company Number: GB-PFIZER INC-2158571

PATIENT
  Age: 61 Year
  Sex: Female
  Weight: 88.9 kg

DRUGS (7)
  1. TRASTUZUMAB. [Suspect]
     Active Substance: TRASTUZUMAB
     Indication: BREAST CANCER FEMALE
     Dosage: FREQ: 1 WEEK; INTERVAL: 3
     Route: 051
     Dates: start: 20101210, end: 20110428
  2. EPIRUBICIN HCL [Suspect]
     Active Substance: EPIRUBICIN HYDROCHLORIDE
     Indication: BREAST CANCER FEMALE
     Dosage: FREQ: 1 WEEK; INTERVAL: 3
     Route: 051
     Dates: start: 20101210, end: 20110428
  3. PREDNISOLONE. [Suspect]
     Active Substance: PREDNISOLONE
     Indication: BREAST CANCER FEMALE
     Dosage: FREQ: 1 WEEK; INTERVAL: 3
     Route: 051
     Dates: start: 20101210, end: 20110428
  4. DOCETAXEL. [Suspect]
     Active Substance: DOCETAXEL
     Indication: BREAST CANCER FEMALE
     Dosage: FREQ: 1 WEEK; INTERVAL: 3
     Route: 051
     Dates: start: 20101210, end: 20110428
  5. ANASTROZOLE. [Concomitant]
     Active Substance: ANASTROZOLE
     Indication: PRODUCT USED FOR UNKNOWN INDICATION
     Dosage: UNK
  6. FLUTICASONE PROPIONATE W/SALMETEROL XINAFOATE [Concomitant]
     Active Substance: FLUTICASONE PROPIONATE\SALMETEROL XINAFOATE
     Indication: PRODUCT USED FOR UNKNOWN INDICATION
     Dosage: UNK
     Route: 055
  7. CYCLOPHOSPHAMIDE. [Suspect]
     Active Substance: CYCLOPHOSPHAMIDE
     Indication: BREAST CANCER FEMALE
     Dosage: FREQ: 1 WEEK; INTERVAL: 3
     Route: 051
     Dates: start: 20101210, end: 20110428

REACTIONS (7)
  - Headache [Not Recovered/Not Resolved]
  - Photopsia [Not Recovered/Not Resolved]
  - Infusion site nerve damage [Not Recovered/Not Resolved]
  - Blindness [Not Recovered/Not Resolved]
  - Arthralgia [Unknown]
  - Hypoacusis [Not Recovered/Not Resolved]
  - Pain [Unknown]

NARRATIVE: CASE EVENT DATE: 20101210
